FAERS Safety Report 4622892-3 (Version None)
Quarter: 2005Q1

REPORT INFORMATION
  Report Type: 
  Country: None (occurrence: None)
  Receive Date: 20050107
  Receipt Date: 20040908
  Transmission Date: 20050727
  Serious: No
  Sender: FDA-Public Use
  Company Number: 232303K04USA

PATIENT
  Age: 32 Year
  Sex: Female

DRUGS (3)
  1. REBIF [Suspect]
     Indication: RELAPSING-REMITTING MULTIPLE SCLEROSIS
     Dosage: 44 MCG, 3 IN 1 WEEKS, SUBCUTANEOUS
     Route: 058
     Dates: start: 20020430
  2. LIORESAL [Concomitant]
  3. VITAMINS (VITAMINS) [Concomitant]

REACTIONS (2)
  - MENSTRUATION IRREGULAR [None]
  - SMEAR CERVIX ABNORMAL [None]
